FAERS Safety Report 4273095-6 (Version None)
Quarter: 2004Q1

REPORT INFORMATION
  Report Type: 
  Country: None (occurrence: None)
  Receive Date: 20040116
  Receipt Date: 20040113
  Transmission Date: 20041129
  Serious: Yes (Hospitalization)
  Sender: FDA-Public Use
  Company Number: PHBS2004NO00766

PATIENT
  Age: 66 Year
  Sex: Female

DRUGS (4)
  1. TEGRETOL [Suspect]
     Indication: EPILEPSY
     Dosage: 600 MG, BID
     Route: 048
  2. VALPROATE SODIUM [Suspect]
     Indication: EPILEPSY
     Dosage: 600 MG, BID
     Route: 048
  3. CIPRAMIL [Concomitant]
     Indication: DEPRESSION
     Dosage: 10 MG/DAY
     Route: 048
  4. TRIMETOPRIM ^NAF^ [Concomitant]
     Indication: URINARY TRACT INFECTION
     Dosage: 100 MG/DAY
     Route: 048

REACTIONS (1)
  - FEMUR FRACTURE [None]
